FAERS Safety Report 7549361-5 (Version None)
Quarter: 2011Q2

REPORT INFORMATION
  Report Type: 
  Country: None (occurrence: None)
  Receive Date: 20110615
  Receipt Date: 20040628
  Transmission Date: 20111010
  Serious: Yes (Hospitalization, Other)
  Sender: FDA-Public Use
  Company Number: PHFR2004GB02465

PATIENT
  Sex: Male
  Weight: 82.54 kg

DRUGS (3)
  1. ANDROCUR [Concomitant]
     Indication: LIBIDO DECREASED
     Dosage: 50 MG, BID
     Route: 048
     Dates: start: 20040501
  2. VENLAFAXINE [Concomitant]
     Indication: DEPRESSION
     Dosage: 225MG/MANE
     Route: 048
     Dates: start: 20030401
  3. CLOZAPINE [Suspect]
     Indication: SCHIZOPHRENIA
     Dosage: 175 MG, BID
     Route: 048
     Dates: start: 20021028

REACTIONS (4)
  - SUICIDE ATTEMPT [None]
  - INTENTIONAL OVERDOSE [None]
  - BLOOD UREA DECREASED [None]
  - BLOOD SODIUM DECREASED [None]
